FAERS Safety Report 8062398 (Version 3)
Quarter: 2015Q1

REPORT INFORMATION
  Report Type: Spontaneous
  Country: US (occurrence: None)
  Receive Date: 20110720
  Receipt Date: 20150226
  Transmission Date: 20150721
  Serious: Yes (Other)
  Sender: FDA-Public Use
  Company Number: TPA2011A03775

PATIENT
  Age: 82 Year
  Sex: Female
  Weight: 52.16 kg

DRUGS (8)
  1. ACTOS [Suspect]
     Active Substance: PIOGLITAZONE HYDROCHLORIDE
     Indication: TYPE 2 DIABETES MELLITUS
     Dosage: 15 MG/850 MG BID, PER ORAL
     Dates: start: 201001, end: 201107
  2. POTASSIUM CITRATE ACID (POTASSIUM CITRATE) [Concomitant]
  3. ASPIR-81 (ACETYLSALICYLIC ACID) [Concomitant]
  4. ACTOPLUS MET [Suspect]
     Active Substance: METFORMIN HYDROCHLORIDE\PIOGLITAZONE HYDROCHLORIDE
     Indication: TYPE 2 DIABETES MELLITUS
     Route: 048
     Dates: start: 201010, end: 20110706
  5. LOTREL (BENAZEPRIL HYDROCHLORIDE, AMLODIPINE BESILATE) [Concomitant]
  6. ZOCOR [Concomitant]
     Active Substance: SIMVASTATIN
  7. FISH OIL [Concomitant]
     Active Substance: FISH OIL
  8. AMLODIPINE BESYLATE/BENAZEPRIL HCL (BENAZEPRIL HYDROCHLORIDE, AMLODIPINE BESILATE) [Concomitant]

REACTIONS (4)
  - Transitional cell carcinoma [None]
  - Haematuria [None]
  - Renal cyst [None]
  - Nephrolithiasis [None]

NARRATIVE: CASE EVENT DATE: 20110328
